FAERS Safety Report 9270270 (Version 2)
Quarter: 2013Q2

REPORT INFORMATION
  Report Type: Report from Study
  Country: US (occurrence: US)
  Receive Date: 20130503
  Receipt Date: 20130517
  Transmission Date: 20140414
  Serious: Yes (Other)
  Sender: FDA-Public Use
  Company Number: US-GENZYME-CAMP-1002882

PATIENT
  Age: 65 Year
  Sex: Male
  Weight: 95 kg

DRUGS (8)
  1. CAMPATH [Suspect]
     Indication: CHRONIC GRAFT VERSUS HOST DISEASE
     Dosage: 3 MG X 1 (ON DAY 1 OF FIRST WEEK)
     Route: 042
     Dates: start: 20080819
  2. CAMPATH [Suspect]
     Dosage: 10 MG X 2 (ON DAY 3 AND 5 OF FIRST WEEK)
     Route: 042
  3. CAMPATH [Suspect]
     Dosage: 10 MG, 1X/W (ONCE IN WEEK 2,3 + 4- ON DAY 8, 15, 22)
     Route: 042
  4. ANTIMICROBIALS [Concomitant]
     Indication: PROPHYLAXIS
     Dosage: UNK
     Route: 065
  5. ANTIFUNGALS [Concomitant]
     Indication: PROPHYLAXIS
     Dosage: UNK
     Route: 065
  6. DIPHENHYDRAMINE [Concomitant]
     Indication: PREMEDICATION
     Dosage: UNK
     Route: 065
  7. ACETAMINOPHEN [Concomitant]
     Indication: PREMEDICATION
     Dosage: UNK
     Route: 065
  8. SIROLIMUS [Concomitant]
     Indication: IMMUNOSUPPRESSANT DRUG THERAPY
     Dosage: UNK
     Route: 065

REACTIONS (4)
  - Glomerulosclerosis [Recovered/Resolved]
  - Nephrotic syndrome [Recovered/Resolved]
  - Idiopathic thrombocytopenic purpura [Recovered/Resolved]
  - Oral herpes [Recovered/Resolved]
